FAERS Safety Report 19738302 (Version 1)
Quarter: 2021Q3

REPORT INFORMATION
  Report Type: Spontaneous
  Country: US (occurrence: US)
  Receive Date: 20210821
  Receipt Date: 20210821
  Transmission Date: 20211014
  Serious: No
  Sender: FDA-Public Use
  Company Number: None

PATIENT
  Age: 76 Year
  Sex: Male
  Weight: 94.5 kg

DRUGS (9)
  1. RANOLAZINE ER [Concomitant]
     Active Substance: RANOLAZINE
  2. LUMIGAN [Concomitant]
     Active Substance: BIMATOPROST
  3. SILODOSIN. [Concomitant]
     Active Substance: SILODOSIN
  4. METOPROLOL SUCC [Concomitant]
     Active Substance: METOPROLOL SUCCINATE
  5. ASPIRIN 81MG [Concomitant]
     Active Substance: ASPIRIN
  6. AMOXICILLIN AND CLAVULANATE POTASSIUM [Suspect]
     Active Substance: AMOXICILLIN\CLAVULANATE POTASSIUM
     Indication: POST PROCEDURAL INFECTION
     Dosage: ?          QUANTITY:14 TABLET(S);?
     Route: 048
  7. PROBIOTIC [Concomitant]
     Active Substance: PROBIOTICS NOS
  8. COMBIGAN [Concomitant]
     Active Substance: BRIMONIDINE TARTRATE\TIMOLOL MALEATE
  9. ATORVASTATIN [Concomitant]
     Active Substance: ATORVASTATIN

REACTIONS (1)
  - Diarrhoea [None]

NARRATIVE: CASE EVENT DATE: 20210821
